FAERS Safety Report 4771573-4 (Version None)
Quarter: 2005Q3

REPORT INFORMATION
  Report Type: 
  Country: None (occurrence: None)
  Receive Date: 20050916
  Receipt Date: 20040801
  Transmission Date: 20060218
  Serious: Yes (Hospitalization)
  Sender: FDA-Public Use
  Company Number: 2004AP03977

PATIENT
  Age: 22152 Day
  Sex: Male

DRUGS (11)
  1. IRESSA [Suspect]
     Indication: NON-SMALL CELL LUNG CANCER STAGE IIIB
     Route: 048
     Dates: start: 20040727, end: 20040730
  2. IRESSA [Suspect]
     Indication: LUNG SQUAMOUS CELL CARCINOMA STAGE III
     Route: 048
     Dates: start: 20040727, end: 20040730
  3. IRESSA [Suspect]
     Route: 048
     Dates: start: 20040825, end: 20040930
  4. IRESSA [Suspect]
     Route: 048
     Dates: start: 20040825, end: 20040930
  5. THYRADIN S [Concomitant]
     Indication: HYPOTHYROIDISM
     Route: 048
  6. CODEINE PHOSPHATE [Concomitant]
     Indication: COUGH
     Route: 048
  7. MUCODYNE [Concomitant]
     Indication: COUGH
     Route: 048
  8. MAGLAX [Concomitant]
     Indication: CONSTIPATION PROPHYLAXIS
     Route: 048
  9. AMARYL [Concomitant]
     Indication: DIABETES MELLITUS
     Route: 048
     Dates: end: 20040730
  10. CARBOPLATIN [Concomitant]
     Dosage: SIX COURSES ADMINISTERED
     Dates: start: 20030930, end: 20040415
  11. PACLITAXEL [Concomitant]
     Dosage: SIX COURSES ADMINISTERED
     Dates: start: 20030930, end: 20040415

REACTIONS (7)
  - ANGINA UNSTABLE [None]
  - CORONARY ARTERY STENOSIS [None]
  - ELECTROCARDIOGRAM ST SEGMENT DEPRESSION [None]
  - MALIGNANT NEOPLASM PROGRESSION [None]
  - NON-SMALL CELL LUNG CANCER [None]
  - PERICARDIAL EFFUSION [None]
  - VENTRICULAR EXTRASYSTOLES [None]
